FAERS Safety Report 21123861 (Version 1)
Quarter: 2022Q3

REPORT INFORMATION
  Report Type: Spontaneous
  Country: FR (occurrence: FR)
  Receive Date: 20220725
  Receipt Date: 20220725
  Transmission Date: 20221027
  Serious: Yes (Other)
  Sender: FDA-Public Use
  Company Number: FR-AFSSAPS-LL20222126

PATIENT
  Age: 2 Year
  Sex: Female

DRUGS (1)
  1. ACETAMINOPHEN [Suspect]
     Active Substance: ACETAMINOPHEN
     Indication: Pyrexia
     Dosage: UNK
     Route: 065
     Dates: start: 20201225

REACTIONS (1)
  - Hypothermia [Recovered/Resolved with Sequelae]

NARRATIVE: CASE EVENT DATE: 20201225
